FAERS Safety Report 7034043-9 (Version None)
Quarter: 2010Q4

REPORT INFORMATION
  Report Type: 
  Country: None (occurrence: None)
  Receive Date: 20101006
  Receipt Date: 20091012
  Transmission Date: 20110411
  Serious: Yes (Life-Threatening, Hospitalization)
  Sender: FDA-Public Use
  Company Number: CTI_01238_2010

PATIENT
  Sex: Male

DRUGS (3)
  1. CUROSURF [Suspect]
     Indication: RESPIRATORY DISTRESS
     Dosage: (240 MG, DF INTRATRACHEAL)
     Route: 039
     Dates: start: 20060718
  2. PENICILLIN G [Concomitant]
  3. MORPHINE [Concomitant]

REACTIONS (4)
  - BRADYCARDIA NEONATAL [None]
  - CARDIAC ARREST NEONATAL [None]
  - CONDITION AGGRAVATED [None]
  - NEONATAL RESPIRATORY DISTRESS SYNDROME [None]
